FAERS Safety Report 24176721 (Version 3)
Quarter: 2024Q3

REPORT INFORMATION
  Report Type: Report from Study
  Country: CA (occurrence: CA)
  Receive Date: 20240806
  Receipt Date: 20240828
  Transmission Date: 20241016
  Serious: Yes (Death, Hospitalization)
  Sender: ABBVIE
  Company Number: CA-ABBVIE-5865911

PATIENT
  Age: 57 Year
  Sex: Male

DRUGS (1)
  1. GLECAPREVIR\PIBRENTASVIR [Suspect]
     Active Substance: GLECAPREVIR\PIBRENTASVIR
     Indication: Chronic hepatitis C
     Dosage: TIME INTERVAL: 0.33333333 DAYS: 100/40 MG TABLET
     Route: 048
     Dates: start: 20240711, end: 20240803

REACTIONS (2)
  - Incubator therapy [Fatal]
  - Dysphagia [Unknown]

NARRATIVE: CASE EVENT DATE: 20240101
